FAERS Safety Report 23348897 (Version 1)
Quarter: 2023Q4

REPORT INFORMATION
  Report Type: Spontaneous
  Country: US (occurrence: US)
  Receive Date: 20231229
  Receipt Date: 20231229
  Transmission Date: 20240109
  Serious: Yes (Other)
  Sender: FDA-Public Use
  Company Number: US-TOLMAR, INC.-23US045704

PATIENT
  Age: 58 Year
  Sex: Female

DRUGS (16)
  1. ELIGARD [Suspect]
     Active Substance: LEUPROLIDE ACETATE
     Indication: Breast cancer
     Dosage: UNK
     Dates: start: 2008
  2. ELIGARD [Suspect]
     Active Substance: LEUPROLIDE ACETATE
     Indication: Breast cancer
     Dosage: UNK
  3. ZOLEDRONIC ACID [Concomitant]
     Active Substance: ZOLEDRONIC ACID
     Indication: Breast cancer
     Dosage: UNK
  4. FULVESTRANT [Concomitant]
     Active Substance: FULVESTRANT
     Indication: Malignant neoplasm progression
     Dosage: UNK
     Dates: start: 2012
  5. TAMOXIFEN [Concomitant]
     Active Substance: TAMOXIFEN
     Indication: Malignant neoplasm progression
     Dosage: UNK
     Dates: start: 2012
  6. DENOSUMAB [Concomitant]
     Active Substance: DENOSUMAB
     Indication: Malignant neoplasm progression
     Dosage: UNK
     Dates: start: 2012
  7. EVEROLIMUS [Concomitant]
     Active Substance: EVEROLIMUS
     Indication: Malignant neoplasm progression
     Dosage: UNK
     Dates: start: 2013
  8. EXEMESTANE [Concomitant]
     Active Substance: EXEMESTANE
     Indication: Malignant neoplasm progression
     Dosage: UNK
     Dates: start: 2013
  9. CAPECITABINE [Concomitant]
     Active Substance: CAPECITABINE
     Indication: Malignant neoplasm progression
  10. CAPECITABINE [Concomitant]
     Active Substance: CAPECITABINE
     Indication: Metastases to liver
  11. IXABEPILONE [Concomitant]
     Active Substance: IXABEPILONE
     Indication: Malignant neoplasm progression
     Dosage: UNK
     Dates: start: 2014
  12. IXABEPILONE [Concomitant]
     Active Substance: IXABEPILONE
     Indication: Metastases to liver
  13. ERIBULIN [Concomitant]
     Active Substance: ERIBULIN
     Indication: Malignant neoplasm progression
     Dosage: UNK
     Dates: start: 2014
  14. ERIBULIN [Concomitant]
     Active Substance: ERIBULIN
     Indication: Metastases to liver
  15. CMF [Concomitant]
     Indication: Malignant neoplasm progression
     Dosage: UNK
     Dates: start: 2014
  16. CMF [Concomitant]
     Indication: Metastases to liver

REACTIONS (5)
  - Metastases to lymph nodes [Not Recovered/Not Resolved]
  - Malignant neoplasm progression [Not Recovered/Not Resolved]
  - Metastases to liver [Unknown]
  - Metastases to bone [Not Recovered/Not Resolved]
  - Off label use [Unknown]
